FAERS Safety Report 9373443 (Version 16)
Quarter: 2013Q4

REPORT INFORMATION
  Report Type: Spontaneous
  Country: US (occurrence: US)
  Receive Date: 20130627
  Receipt Date: 20131101
  Transmission Date: 20140711
  Serious: Yes (Life-Threatening, Hospitalization, Disabling, Other)
  Sender: FDA-Public Use
  Company Number: US-009507513-1306USA013673

PATIENT
  Sex: Male
  Weight: 104.76 kg

DRUGS (3)
  1. JANUMET [Suspect]
     Indication: TYPE 2 DIABETES MELLITUS
     Dosage: 1000 MG/50 MG BID
     Route: 048
     Dates: end: 2013
  2. JANUMET [Suspect]
     Dosage: 50MG/500MG, UNK
     Route: 048
  3. GLIPIZIDE [Concomitant]
     Indication: TYPE 2 DIABETES MELLITUS

REACTIONS (40)
  - Pancreatic carcinoma metastatic [Not Recovered/Not Resolved]
  - Pneumonia [Recovering/Resolving]
  - Cholestasis [Unknown]
  - Deafness unilateral [Unknown]
  - Bile duct stent insertion [Unknown]
  - Pneumobilia [Unknown]
  - Renal failure [Recovering/Resolving]
  - Pancreatitis [Unknown]
  - Nephrolithiasis [Not Recovered/Not Resolved]
  - Diverticulum [Unknown]
  - Spondylolisthesis [Not Recovered/Not Resolved]
  - Hepatic mass [Not Recovered/Not Resolved]
  - Hepatic steatosis [Unknown]
  - Loose tooth [Unknown]
  - Bile duct stenosis [Unknown]
  - Tinnitus [Unknown]
  - Hypoaesthesia [Unknown]
  - Hypertension [Unknown]
  - Dysphonia [Not Recovered/Not Resolved]
  - Oropharyngeal pain [Unknown]
  - Productive cough [Not Recovered/Not Resolved]
  - Musculoskeletal pain [Recovering/Resolving]
  - Pneumonia [Unknown]
  - Dyslipidaemia [Unknown]
  - Hypertriglyceridaemia [Unknown]
  - Type 2 diabetes mellitus [Unknown]
  - Erythema [Unknown]
  - Pulmonary mass [Unknown]
  - Cholelithiasis [Not Recovered/Not Resolved]
  - Hydrocele [Unknown]
  - Prostatomegaly [Unknown]
  - Intervertebral disc degeneration [Unknown]
  - Gastrooesophageal reflux disease [Unknown]
  - Osteoarthritis [Unknown]
  - Ulna fracture [Unknown]
  - Osteoarthritis [Unknown]
  - Anal abscess [Unknown]
  - Abscess drainage [Unknown]
  - Pyrexia [Unknown]
  - Cataract operation [Unknown]
